FAERS Safety Report 4842616-4 (Version None)
Quarter: 2005Q4

REPORT INFORMATION
  Report Type: 
  Country: None (occurrence: None)
  Receive Date: 20051201
  Receipt Date: 20051126
  Transmission Date: 20060501
  Serious: Yes (Life-Threatening, Other)
  Sender: FDA-Public Use
  Company Number: GB-GLAXOSMITHKLINE-B0401822A

PATIENT
  Age: 29 Year
  Sex: Female
  Weight: 50 kg

DRUGS (3)
  1. ZYBAN [Suspect]
     Indication: SMOKING CESSATION THERAPY
     Dosage: 150MG PER DAY
     Route: 048
     Dates: start: 20051107, end: 20051111
  2. FLUCLOXACILLINE [Concomitant]
     Indication: SUBCUTANEOUS ABSCESS
     Dosage: 500MG PER DAY
     Route: 048
     Dates: start: 20051107, end: 20051114
  3. CELECOXIB [Concomitant]
     Indication: ANALGESIC EFFECT
     Route: 065
     Dates: start: 20050906, end: 20051001

REACTIONS (4)
  - AMNESIA [None]
  - CONVULSION [None]
  - HALLUCINATION [None]
  - INTENTIONAL OVERDOSE [None]
